FAERS Safety Report 7363769-2 (Version None)
Quarter: 2011Q1

REPORT INFORMATION
  Report Type: 
  Country: None (occurrence: None)
  Receive Date: 20110321
  Receipt Date: 20110315
  Transmission Date: 20110831
  Serious: Yes (Death)
  Sender: FDA-Public Use
  Company Number: US-CELGENEUS-163-21880-11012746

PATIENT
  Sex: Male
  Weight: 55.4 kg

DRUGS (1)
  1. REVLIMID [Suspect]
     Dosage: 15 MILLIGRAM
     Route: 048
     Dates: start: 20101201, end: 20110103

REACTIONS (2)
  - PNEUMONIA [None]
  - RESPIRATORY FAILURE [None]
